FAERS Safety Report 9603174 (Version 1)
Quarter: 2013Q4

REPORT INFORMATION
  Report Type: Spontaneous
  Country: FR (occurrence: FR)
  Receive Date: 20131007
  Receipt Date: 20131007
  Transmission Date: 20140711
  Serious: Yes (Hospitalization)
  Sender: FDA-Public Use
  Company Number: FR-BRISTOL-MYERS SQUIBB COMPANY-19463520

PATIENT
  Age: 56 Year
  Sex: Female

DRUGS (3)
  1. ABILIFY TABS [Suspect]
     Indication: BIPOLAR DISORDER
     Route: 048
     Dates: start: 20130725, end: 20130825
  2. DEPAKOTE [Concomitant]
     Indication: BIPOLAR DISORDER
     Dosage: TABS
     Route: 048
     Dates: start: 201308, end: 201308
  3. SEROQUEL [Concomitant]
     Indication: BIPOLAR DISORDER
     Dosage: TABS
     Route: 048
     Dates: start: 201308

REACTIONS (3)
  - Suicidal ideation [Recovered/Resolved]
  - Malaise [Recovered/Resolved]
  - Bipolar disorder [Recovered/Resolved]
